FAERS Safety Report 9470431 (Version 1)
Quarter: 2013Q3

REPORT INFORMATION
  Report Type: Spontaneous
  Country: US (occurrence: None)
  Receive Date: 20130820
  Receipt Date: 20130820
  Transmission Date: 20140515
  Serious: Yes (Disabling)
  Sender: FDA-Public Use
  Company Number: None

PATIENT
  Age: 57 Year
  Sex: Female
  Weight: 76.2 kg

DRUGS (1)
  1. CIPROFLOXACIN [Suspect]
     Indication: DIVERTICULITIS
     Route: 048
     Dates: start: 20120225, end: 20120229

REACTIONS (8)
  - Abdominal pain lower [None]
  - Diverticulitis [None]
  - Aphagia [None]
  - Insomnia [None]
  - Dizziness [None]
  - Feeling abnormal [None]
  - Memory impairment [None]
  - Muscular weakness [None]
